FAERS Safety Report 8523483 (Version 2)
Quarter: 2012Q4

REPORT INFORMATION
  Report Type: 
  Country: MX (occurrence: MX)
  Receive Date: 20120420
  Receipt Date: 20121010
  Transmission Date: 20130627
  Serious: Yes (Death, Hospitalization, Other)
  Sender: FDA-Public Use
  Company Number: MX-SANOFI-AVENTIS-2012SA016847

PATIENT
  Age: 49 None
  Sex: Female

DRUGS (20)
  1. TAXOTERE [Suspect]
     Indication: BREAST CANCER STAGE II
     Route: 042
     Dates: start: 20111017, end: 20111017
  2. TAXOTERE [Suspect]
     Indication: BREAST CANCER STAGE II
     Route: 042
     Dates: start: 20111017, end: 20111017
  3. TAXOTERE [Suspect]
     Indication: BREAST CANCER STAGE II
     Route: 042
     Dates: start: 20111017, end: 20111017
  4. TAXOTERE [Suspect]
     Indication: BREAST CANCER STAGE II
     Route: 042
     Dates: start: 20111017, end: 20111017
  5. TAXOTERE [Suspect]
     Indication: BREAST CANCER STAGE II
     Route: 042
     Dates: start: 20111017, end: 20111017
  6. TAXOTERE [Suspect]
     Indication: BREAST CANCER STAGE II
     Route: 042
     Dates: start: 20111118, end: 20111118
  7. TAXOTERE [Suspect]
     Indication: BREAST CANCER STAGE II
     Route: 042
     Dates: start: 20111118, end: 20111118
  8. TAXOTERE [Suspect]
     Indication: BREAST CANCER STAGE II
     Route: 042
     Dates: start: 20111118, end: 20111118
  9. TAXOTERE [Suspect]
     Indication: BREAST CANCER STAGE II
     Route: 042
     Dates: start: 20111118, end: 20111118
  10. TAXOTERE [Suspect]
     Indication: BREAST CANCER STAGE II
     Route: 042
     Dates: start: 20111118, end: 20111118
  11. TAXOTERE [Suspect]
     Indication: BREAST CANCER STAGE II
     Route: 042
     Dates: start: 20111209, end: 20111209
  12. TAXOTERE [Suspect]
     Indication: BREAST CANCER STAGE II
     Route: 042
     Dates: start: 20111209, end: 20111209
  13. TAXOTERE [Suspect]
     Indication: BREAST CANCER STAGE II
     Route: 042
     Dates: start: 20111209, end: 20111209
  14. TAXOTERE [Suspect]
     Indication: BREAST CANCER STAGE II
     Route: 042
     Dates: start: 20111209, end: 20111209
  15. TAXOTERE [Suspect]
     Indication: BREAST CANCER STAGE II
     Route: 042
     Dates: start: 20111209, end: 20111209
  16. TAXOTERE [Suspect]
     Indication: BREAST CANCER STAGE II
     Route: 042
     Dates: start: 20111230, end: 20111230
  17. TAXOTERE [Suspect]
     Indication: BREAST CANCER STAGE II
     Route: 042
     Dates: start: 20111230, end: 20111230
  18. TAXOTERE [Suspect]
     Indication: BREAST CANCER STAGE II
     Route: 042
     Dates: start: 20111230, end: 20111230
  19. TAXOTERE [Suspect]
     Indication: BREAST CANCER STAGE II
     Route: 042
     Dates: start: 20111230, end: 20111230
  20. TAXOTERE [Suspect]
     Indication: BREAST CANCER STAGE II
     Route: 042
     Dates: start: 20111230, end: 20111230

REACTIONS (22)
  - Ventricular fibrillation [Fatal]
  - Pneumonia [Unknown]
  - Dyspnoea [Unknown]
  - Cough [Unknown]
  - Fatigue [Unknown]
  - Asthenia [Unknown]
  - Pneumonia respiratory syncytial viral [Unknown]
  - Cardiomegaly [Unknown]
  - Pericardial effusion [Unknown]
  - Lymphadenopathy mediastinal [Unknown]
  - Atelectasis [Unknown]
  - Pleural effusion [Unknown]
  - Septic shock [Unknown]
  - Hyperthermia [Unknown]
  - Thrombocytopenia [Unknown]
  - Acute respiratory distress syndrome [Unknown]
  - Hypoxia [Unknown]
  - Arrhythmia [Unknown]
  - Hypercapnia [Unknown]
  - Respiratory distress [Unknown]
  - Hypercapnia [Unknown]
  - Acid base balance abnormal [Unknown]
